FAERS Safety Report 5255145-3 (Version None)
Quarter: 2007Q1

REPORT INFORMATION
  Report Type: 
  Country: None (occurrence: None)
  Receive Date: 20070305
  Receipt Date: 20070221
  Transmission Date: 20070707
  Serious: Yes (Other)
  Sender: FDA-Public Use
  Company Number: 2007SE00809

PATIENT
  Age: 55 Year
  Sex: Male

DRUGS (17)
  1. SEROQUEL [Suspect]
     Indication: ANXIETY
     Route: 048
     Dates: start: 20061201, end: 20070220
  2. SEROQUEL [Suspect]
     Indication: DEPRESSION
     Route: 048
     Dates: start: 20061201, end: 20070220
  3. SEROQUEL [Suspect]
     Route: 048
     Dates: start: 20070221
  4. SEROQUEL [Suspect]
     Route: 048
     Dates: start: 20070221
  5. EFFEXOR [Interacting]
     Dates: start: 20060101, end: 20070220
  6. EFFEXOR [Interacting]
     Dates: start: 20070221
  7. ZYPREXA [Concomitant]
     Dates: start: 20060801, end: 20061201
  8. BUSPAR [Concomitant]
     Dates: start: 20060101
  9. TRUXAL [Concomitant]
  10. LYRICA [Concomitant]
     Dates: start: 20070116, end: 20070201
  11. LYRICA [Concomitant]
     Dates: start: 20070201
  12. VALLERGAN [Concomitant]
  13. VALLERGAN [Concomitant]
     Dates: start: 20070201
  14. MELATONIN [Concomitant]
     Dates: start: 20060101
  15. EFFEXOR [Concomitant]
     Dates: start: 20060101, end: 20070220
  16. EFFEXOR [Concomitant]
     Dates: start: 20070221
  17. TOLVON [Concomitant]
     Dates: start: 20060101

REACTIONS (3)
  - BLOOD CHOLESTEROL INCREASED [None]
  - BLOOD TRIGLYCERIDES INCREASED [None]
  - DRUG INTERACTION [None]
